FAERS Safety Report 9347481 (Version 1)
Quarter: 2013Q2

REPORT INFORMATION
  Report Type: Spontaneous
  Country: BR (occurrence: BR)
  Receive Date: 20130614
  Receipt Date: 20130614
  Transmission Date: 20140414
  Serious: Yes (Other)
  Sender: FDA-Public Use
  Company Number: BR-RANBAXY-2013R5-70146

PATIENT
  Age: 0 Year
  Sex: Female
  Weight: 7.5 kg

DRUGS (1)
  1. CEFUROXIME AXETIL [Suspect]
     Indication: BRANCHIAL CYST
     Dosage: 5 ML, BID
     Route: 048
     Dates: start: 20130520, end: 20130524

REACTIONS (3)
  - Vomiting [Recovered/Resolved]
  - Diarrhoea [Recovered/Resolved]
  - Anal fissure [Recovered/Resolved]
